FAERS Safety Report 7068953-3 (Version None)
Quarter: 2010Q4

REPORT INFORMATION
  Report Type: 
  Country: None (occurrence: None)
  Receive Date: 20101028
  Receipt Date: 20101019
  Transmission Date: 20110411
  Serious: Yes (Hospitalization, Other)
  Sender: FDA-Public Use
  Company Number: ES-ABBOTT-10P-144-0679325-00

PATIENT
  Age: 29 Year
  Sex: Male

DRUGS (5)
  1. HUMIRA [Suspect]
     Indication: CROHN'S DISEASE
     Route: 058
     Dates: start: 20080601, end: 20090301
  2. HUMIRA [Suspect]
     Route: 058
     Dates: start: 20090301, end: 20101001
  3. METRONIDAZOLE [Suspect]
     Indication: GASTROENTERITIS
     Dates: start: 20101001, end: 20101012
  4. MESALAMINE [Suspect]
     Indication: CROHN'S DISEASE
     Route: 048
  5. PREDNISONE [Concomitant]
     Indication: CROHN'S DISEASE
     Dosage: FROM 8 TO 16 MG PER DAY
     Route: 048
     Dates: start: 20080601, end: 20100801

REACTIONS (6)
  - ACUTE PRERENAL FAILURE [None]
  - BLOOD AMYLASE INCREASED [None]
  - DRUG INEFFECTIVE [None]
  - GASTROENTERITIS [None]
  - LICHENOID KERATOSIS [None]
  - LIPASE INCREASED [None]
